FAERS Safety Report 9687051 (Version 3)
Quarter: 2014Q2

REPORT INFORMATION
  Report Type: Report from Study
  Country: US (occurrence: US)
  Receive Date: 20131113
  Receipt Date: 20140416
  Transmission Date: 20141212
  Serious: Yes (Hospitalization)
  Sender: FDA-Public Use
  Company Number: US-US-EMD SERONO, INC.-7248574

PATIENT
  Age: 57 Year
  Sex: Male

DRUGS (5)
  1. REBIF [Suspect]
     Indication: MULTIPLE SCLEROSIS
     Route: 058
     Dates: start: 20090924, end: 201401
  2. ALEVE                              /00256202/ [Suspect]
     Indication: INTERVERTEBRAL DISC DEGENERATION
     Dates: start: 2003
  3. ALEVE                              /00256202/ [Suspect]
     Indication: ARTHRITIS
  4. ASPIRIN                            /00002701/ [Suspect]
     Indication: CARDIAC DISORDER
  5. MODAFINIL [Concomitant]
     Indication: MULTIPLE SCLEROSIS

REACTIONS (8)
  - Perforated ulcer [Recovering/Resolving]
  - Pneumonia [Recovered/Resolved]
  - Abdominal distension [Not Recovered/Not Resolved]
  - Dysstasia [Not Recovered/Not Resolved]
  - Abasia [Not Recovered/Not Resolved]
  - Asthenia [Not Recovered/Not Resolved]
  - Back pain [Not Recovered/Not Resolved]
  - Cardiomegaly [Unknown]
